FAERS Safety Report 7477520-9 (Version None)
Quarter: 2011Q2

REPORT INFORMATION
  Report Type: 
  Country: None (occurrence: None)
  Receive Date: 20110511
  Receipt Date: 20110511
  Transmission Date: 20111010
  Serious: Yes (Other)
  Sender: FDA-Public Use
  Company Number: None

PATIENT
  Age: 11 Year
  Sex: Female
  Weight: 43.3 kg

DRUGS (2)
  1. FLEBOGAMMA [Suspect]
  2. FLEBOGAMMA [Suspect]
     Indication: THROMBOCYTOPENIA
     Dosage: 45GRAMS ONCE IV DRIP
     Route: 041
     Dates: start: 20110314, end: 20110314

REACTIONS (2)
  - DYSPNOEA [None]
  - WHEEZING [None]
